FAERS Safety Report 4931771-3 (Version None)
Quarter: 2006Q1

REPORT INFORMATION
  Report Type: 
  Country: None (occurrence: None)
  Receive Date: 20060303
  Receipt Date: 20060215
  Transmission Date: 20060701
  Serious: Yes (Hospitalization)
  Sender: FDA-Public Use
  Company Number: CA-BRISTOL-MYERS SQUIBB COMPANY-13285952

PATIENT
  Age: 73 Year
  Sex: Female

DRUGS (14)
  1. CETUXIMAB [Suspect]
     Indication: NON-SMALL CELL LUNG CANCER
     Dosage: THERAPY START DATE 24-AUG-05. DOSE DELAYED/OMITTED.
     Route: 042
     Dates: start: 20060202, end: 20060202
  2. CARBOPLATIN [Suspect]
     Indication: NON-SMALL CELL LUNG CANCER
     Dosage: THERAPY START DATE 24-AUG-05. DOSE DELAYED/OMITTED.
     Route: 042
     Dates: start: 20060202, end: 20060202
  3. GEMCITABINE [Suspect]
     Indication: NON-SMALL CELL LUNG CANCER
     Dosage: THERAPY START DATE 24-AUG-05. DOSE DELAYED/OMITTED.
     Route: 042
     Dates: start: 20060209, end: 20060209
  4. METOCLOPRAMIDE [Concomitant]
     Dates: start: 20051004
  5. ZOPICLON [Concomitant]
     Dates: start: 20051003
  6. ANUSOL [Concomitant]
     Dates: start: 20051102
  7. SENNA [Concomitant]
     Dates: start: 20051103
  8. DOCUSATE CALCIUM [Concomitant]
     Dates: start: 20051103
  9. FUROSEMIDE [Concomitant]
     Dates: start: 20051105
  10. DEXAMETHASONE SODIUM PHOSPHATE [Concomitant]
     Dates: start: 20050824
  11. ONDANSETRON [Concomitant]
     Dates: start: 20050824
  12. EPOETIN ALFA [Concomitant]
     Dates: start: 20050916
  13. SILVER SULFADIAZINE [Concomitant]
     Dates: start: 20051206
  14. SEPTRA DS [Concomitant]
     Dates: start: 20060125, end: 20060131

REACTIONS (3)
  - EPISTAXIS [None]
  - FEBRILE NEUTROPENIA [None]
  - THROMBOCYTOPENIA [None]
